FAERS Safety Report 19944978 (Version 1)
Quarter: 2021Q4

REPORT INFORMATION
  Report Type: Spontaneous
  Country: GD (occurrence: GD)
  Receive Date: 20211012
  Receipt Date: 20211012
  Transmission Date: 20220303
  Serious: Yes (Hospitalization, Other)
  Sender: FDA-Public Use
  Company Number: GD-ALVOGEN-2021-ALVOGEN-117641

PATIENT
  Age: 31 Year
  Sex: Female

DRUGS (3)
  1. LIDOCAINE [Suspect]
     Active Substance: LIDOCAINE
     Indication: Epidural anaesthesia
     Dosage: BOLUS OF 16 ML 2% LIDOCAINE
  2. EPINEPHRINE [Concomitant]
     Active Substance: EPINEPHRINE
     Indication: Product used for unknown indication
  3. METHYLERGONOVINE MALEATE [Concomitant]
     Active Substance: METHYLERGONOVINE MALEATE
     Indication: Uterine atony
     Route: 030

REACTIONS (2)
  - Horner^s syndrome [Recovered/Resolved]
  - Loss of consciousness [Recovered/Resolved]
